FAERS Safety Report 6425872-0 (Version None)
Quarter: 2009Q4

REPORT INFORMATION
  Report Type: 
  Country: None (occurrence: None)
  Receive Date: 20091103
  Receipt Date: 20090408
  Transmission Date: 20100525
  Serious: No
  Sender: FDA-Public Use
  Company Number: US-ABBOTT-09P-163-0498677-00

PATIENT
  Sex: Male
  Weight: 83.99 kg

DRUGS (5)
  1. BIAXIN [Suspect]
     Indication: HELICOBACTER INFECTION
     Route: 048
     Dates: start: 20090116
  2. LANSOPRAZOLE [Suspect]
     Indication: HELICOBACTER INFECTION
     Dates: start: 20090116
  3. AMOXICILLIN [Suspect]
     Indication: HELICOBACTER INFECTION
     Dates: start: 20090116
  4. PREVACID [Concomitant]
     Indication: HELICOBACTER INFECTION
     Route: 048
     Dates: start: 20090116
  5. AMOXICILLIN [Concomitant]
     Route: 048
     Dates: start: 20090116

REACTIONS (1)
  - PRURITUS [None]
